FAERS Safety Report 10571195 (Version 2)
Quarter: 2014Q4

REPORT INFORMATION
  Report Type: Spontaneous
  Country: US (occurrence: US)
  Receive Date: 20141107
  Receipt Date: 20141107
  Transmission Date: 20150529
  Serious: Yes (Other)
  Sender: FDA-Public Use
  Company Number: US-CELGENE-163-POMAL-14052419

PATIENT
  Age: 74 Year
  Sex: Male
  Weight: 90.8 kg

DRUGS (2)
  1. POMALYST [Suspect]
     Active Substance: POMALIDOMIDE
     Route: 048
     Dates: start: 201410
  2. POMALYST [Suspect]
     Active Substance: POMALIDOMIDE
     Indication: PLASMA CELL MYELOMA
     Route: 048
     Dates: start: 20131017, end: 2014

REACTIONS (12)
  - Migraine [Unknown]
  - Vertigo [Unknown]
  - Dry mouth [Not Recovered/Not Resolved]
  - Paraesthesia [Not Recovered/Not Resolved]
  - Hypoaesthesia [Unknown]
  - Arthritis [Unknown]
  - Abdominal pain [Unknown]
  - Constipation [Not Recovered/Not Resolved]
  - Upper respiratory tract infection [Recovering/Resolving]
  - Peripheral swelling [Unknown]
  - Dizziness [Not Recovered/Not Resolved]
  - Haematochezia [Unknown]

NARRATIVE: CASE EVENT DATE: 20131118
